FAERS Safety Report 9397330 (Version 1)
Quarter: 2013Q3

REPORT INFORMATION
  Report Type: Spontaneous
  Country: US (occurrence: None)
  Receive Date: 20130711
  Receipt Date: 20130711
  Transmission Date: 20140515
  Serious: Yes (Life-Threatening, Other)
  Sender: FDA-Public Use
  Company Number: None

PATIENT
  Age: 87 None
  Sex: Female

DRUGS (16)
  1. CYMBALTA [Suspect]
     Indication: NEUROPATHY PERIPHERAL
     Route: 048
     Dates: start: 20130417, end: 20130629
  2. LEVOXL [Concomitant]
  3. ZETIA [Concomitant]
  4. LASIX [Concomitant]
  5. KLOR CON 8 MEQ [Concomitant]
  6. CLONIDINE [Concomitant]
  7. ALDACTONE [Concomitant]
  8. ATEMP;P; [Concomitant]
  9. LIPITOR [Concomitant]
  10. ASPIRIN [Concomitant]
  11. MAGNESIUM [Concomitant]
  12. VITAMIN B-100 [Concomitant]
  13. VITAMIN B-12 [Concomitant]
  14. PRILOSEC [Concomitant]
  15. TYLENOL ARTHRITIS [Concomitant]
  16. PERIO-COLACE [Concomitant]

REACTIONS (2)
  - Convulsion [None]
  - Dizziness [None]
